FAERS Safety Report 23595496 (Version 1)
Quarter: 2024Q1

REPORT INFORMATION
  Report Type: Spontaneous
  Country: US (occurrence: US)
  Receive Date: 20240305
  Receipt Date: 20240305
  Transmission Date: 20240410
  Serious: Yes (Death, Hospitalization, Other)
  Sender: FDA-Public Use
  Company Number: US-AMGEN-USASP2024041290

PATIENT

DRUGS (2)
  1. CARFILZOMIB [Suspect]
     Active Substance: CARFILZOMIB
     Indication: Plasma cell myeloma
     Dosage: UNK
     Route: 065
     Dates: start: 2022
  2. FILGRASTIM [Suspect]
     Active Substance: FILGRASTIM
     Indication: Prophylaxis
     Dosage: UNK
     Route: 065
     Dates: start: 2022

REACTIONS (12)
  - Death [Fatal]
  - Unevaluable event [Unknown]
  - Diffuse large B-cell lymphoma [Unknown]
  - Central nervous system lymphoma [Unknown]
  - Chronic lymphocytic leukaemia [Unknown]
  - T-cell prolymphocytic leukaemia [Unknown]
  - Follicular lymphoma [Unknown]
  - Mantle cell lymphoma [Unknown]
  - Natural killer-cell lymphoblastic lymphoma [Unknown]
  - T-cell lymphoma [Unknown]
  - Plasma cell myeloma [Unknown]
  - Drug tolerance [Unknown]
